FAERS Safety Report 8537035-3 (Version None)
Quarter: 2012Q3

REPORT INFORMATION
  Report Type: 
  Country: None (occurrence: None)
  Receive Date: 20120725
  Receipt Date: 20120723
  Transmission Date: 20120928
  Serious: Yes (Other)
  Sender: FDA-Public Use
  Company Number: US-PFIZER INC-2012143985

PATIENT
  Sex: Female
  Weight: 53.061 kg

DRUGS (7)
  1. CYMBALTA [Concomitant]
     Dosage: UNK
  2. PROZAC [Concomitant]
     Dosage: UNK
  3. PRISTIQ [Suspect]
     Indication: ANXIETY
     Dosage: 50 MG, 1X/DAY
     Route: 048
     Dates: start: 20120521, end: 20120601
  4. PRISTIQ [Suspect]
     Indication: DEPRESSION
  5. TOPAMAX [Concomitant]
     Indication: TOURETTE'S DISORDER
     Dosage: 100MG H.S.
  6. KLONOPIN [Concomitant]
     Dosage: UNK
  7. LEVOXYL [Concomitant]
     Indication: HYPOTHYROIDISM
     Dosage: UNK

REACTIONS (11)
  - DEPRESSION [None]
  - DYSPNOEA [None]
  - FATIGUE [None]
  - ABNORMAL DREAMS [None]
  - FEELING ABNORMAL [None]
  - MUSCLE SPASMS [None]
  - ABDOMINAL DISCOMFORT [None]
  - SUICIDAL IDEATION [None]
  - SOMNOLENCE [None]
  - MALAISE [None]
  - DRUG INEFFECTIVE [None]
